FAERS Safety Report 7547255-2 (Version None)
Quarter: 2011Q2

REPORT INFORMATION
  Report Type: 
  Country: None (occurrence: None)
  Receive Date: 20110614
  Receipt Date: 20110419
  Transmission Date: 20111010
  Serious: Yes (Death)
  Sender: FDA-Public Use
  Company Number: PHHO2011BF06921

PATIENT
  Sex: Female

DRUGS (1)
  1. CGP 56697 [Suspect]
     Indication: MALARIA
     Dosage: 120 MG, BID
     Dates: start: 20110317

REACTIONS (1)
  - SUDDEN DEATH [None]
